FAERS Safety Report 10209294 (Version 2)
Quarter: 2014Q2

REPORT INFORMATION
  Report Type: Report from Study
  Country: NL (occurrence: NL)
  Receive Date: 20140530
  Receipt Date: 20140609
  Transmission Date: 20141212
  Serious: Yes (Death, Hospitalization)
  Sender: FDA-Public Use
  Company Number: NL-ONYX-2014-1170

PATIENT
  Age: 64 Year
  Sex: Female
  Weight: 72.2 kg

DRUGS (20)
  1. CARFILZOMIB [Suspect]
     Indication: COLORECTAL CANCER
     Route: 042
     Dates: start: 20140522, end: 20140523
  2. ALLOPURINOL [Concomitant]
     Indication: PROPHYLAXIS
     Route: 048
     Dates: start: 20140522
  3. MAGNESIUM OXIDE [Concomitant]
     Indication: CONSTIPATION
     Route: 048
     Dates: start: 20140522
  4. FENTANYL [Concomitant]
     Indication: PAIN IN EXTREMITY
     Route: 062
     Dates: start: 20140523
  5. AMLODIPINE [Concomitant]
     Indication: HYPERTENSION
     Route: 048
     Dates: start: 20131203
  6. FUROSEMIDE [Concomitant]
     Indication: OEDEMA PERIPHERAL
     Route: 048
     Dates: start: 20140514
  7. LOPERAMIDE [Concomitant]
     Indication: DIARRHOEA
     Route: 048
     Dates: start: 20140522
  8. METOCLOPRAMIDE [Concomitant]
     Indication: NAUSEA
     Route: 048
     Dates: start: 20140523
  9. NORTRIPTILINE [Concomitant]
     Indication: PAIN IN EXTREMITY
     Route: 048
     Dates: start: 20140520
  10. ONDANSETRON [Concomitant]
     Indication: NAUSEA
     Route: 048
     Dates: start: 20140522
  11. OXYCODONE [Concomitant]
     Indication: PAIN IN EXTREMITY
     Route: 048
     Dates: start: 201405
  12. PREGABALINE [Concomitant]
     Indication: PAIN IN EXTREMITY
     Route: 048
  13. TINZAPARINE [Concomitant]
     Indication: DEEP VEIN THROMBOSIS
     Route: 058
  14. TINZAPARINE [Concomitant]
     Indication: PULMONARY EMBOLISM
  15. VALACICLOVIR [Concomitant]
     Indication: PROPHYLAXIS
     Route: 048
     Dates: start: 20140522
  16. HYDROCHLOROTHIAZIDE [Concomitant]
     Indication: HYPERTENSION
     Route: 048
     Dates: end: 20140513
  17. ENALAPRIL [Concomitant]
     Indication: HYPERTENSION
     Route: 048
     Dates: end: 20140523
  18. METFORMIN [Concomitant]
     Indication: TYPE 2 DIABETES MELLITUS
     Route: 048
     Dates: end: 20140523
  19. INHIBIN [Concomitant]
     Indication: MUSCLE SPASMS
     Route: 048
     Dates: end: 20140513
  20. DEXAMETHASONE [Concomitant]
     Indication: PLASMA CELL MYELOMA
     Route: 042
     Dates: start: 20140522

REACTIONS (1)
  - Gastrointestinal haemorrhage [Fatal]
